FAERS Safety Report 9509788 (Version 1)
Quarter: 2013Q3

REPORT INFORMATION
  Report Type: Spontaneous
  Country: US (occurrence: US)
  Receive Date: 20130909
  Receipt Date: 20130909
  Transmission Date: 20140515
  Serious: Yes (Other)
  Sender: FDA-Public Use
  Company Number: US-BRISTOL-MYERS SQUIBB COMPANY-18854323

PATIENT
  Sex: Male

DRUGS (7)
  1. ABILIFY [Suspect]
     Indication: BIPOLAR I DISORDER
  2. PERCOCET [Concomitant]
  3. KLONOPIN [Concomitant]
  4. ZOLOFT [Concomitant]
  5. VIAGRA [Concomitant]
  6. IBUPROFEN [Concomitant]
  7. NUVIGIL [Concomitant]

REACTIONS (1)
  - Diabetes mellitus [Unknown]
